FAERS Safety Report 5424675-3 (Version None)
Quarter: 2007Q3

REPORT INFORMATION
  Report Type: 
  Country: None (occurrence: None)
  Receive Date: 20070824
  Receipt Date: 20070821
  Transmission Date: 20080115
  Serious: Yes (Other)
  Sender: FDA-Public Use
  Company Number: PHNU2007DE02917

PATIENT
  Age: 37 Year
  Sex: Male

DRUGS (3)
  1. DOXYCYCLINE [Suspect]
     Indication: EPIDIDYMITIS
     Dosage: 100 MG, BID
     Dates: start: 20070815, end: 20070820
  2. TEGRETOL [Suspect]
     Indication: EPILEPSY
     Dates: start: 19790101, end: 19970101
  3. TEGRETOL [Suspect]
     Dosage: 400 MG, BID
     Dates: start: 19970101

REACTIONS (3)
  - DRUG INTERACTION [None]
  - EPIDIDYMITIS [None]
  - GRAND MAL CONVULSION [None]
